FAERS Safety Report 9927851 (Version 1)
Quarter: 2014Q1

REPORT INFORMATION
  Report Type: Report from Study
  Country: US (occurrence: US)
  Receive Date: 20140227
  Receipt Date: 20140227
  Transmission Date: 20141002
  Serious: Yes (Hospitalization, Other)
  Sender: FDA-Public Use
  Company Number: US-JNJFOC-20140211571

PATIENT
  Sex: Female
  Weight: 83.92 kg

DRUGS (2)
  1. REMICADE [Suspect]
     Indication: CROHN^S DISEASE
     Route: 042
     Dates: start: 2004, end: 200611
  2. REMICADE [Suspect]
     Indication: CROHN^S DISEASE
     Route: 042
     Dates: start: 201202, end: 201202

REACTIONS (8)
  - Tendon rupture [Unknown]
  - Anaphylactic shock [Recovered/Resolved]
  - White blood cell count increased [Unknown]
  - Crohn^s disease [Unknown]
  - Arthralgia [Unknown]
  - Swelling face [Unknown]
  - Urticaria [Unknown]
  - Pyrexia [Unknown]
